FAERS Safety Report 9348041 (Version 1)
Quarter: 2013Q2

REPORT INFORMATION
  Report Type: Other
  Country: US (occurrence: US)
  Receive Date: 20130614
  Receipt Date: 20130614
  Transmission Date: 20140414
  Serious: Yes (Hospitalization)
  Sender: FDA-Public Use
  Company Number: US-SHIRE-ALL1-2013-03706

PATIENT
  Age: 18 Year
  Sex: Male

DRUGS (1)
  1. ELAPRASE [Suspect]
     Indication: MUCOPOLYSACCHARIDOSIS II
     Dosage: 18 MG, OTHER (3 VIALS BIMONTHLY)
     Route: 041
     Dates: start: 20080407

REACTIONS (2)
  - Dyspnoea [Recovered/Resolved]
  - Device component issue [Unknown]
